FAERS Safety Report 7328236-0 (Version None)
Quarter: 2011Q1

REPORT INFORMATION
  Report Type: 
  Country: None (occurrence: None)
  Receive Date: 20110303
  Receipt Date: 20110223
  Transmission Date: 20110831
  Serious: Yes (Hospitalization)
  Sender: FDA-Public Use
  Company Number: US-ALEXION-A201100221

PATIENT
  Sex: Male

DRUGS (8)
  1. SOLIRIS [Suspect]
     Indication: PAROXYSMAL NOCTURNAL HAEMOGLOBINURIA
     Dosage: 900 MG, UNK
     Route: 042
  2. NORTRIPTYLINE [Concomitant]
     Dosage: UNK
     Route: 048
  3. MULTI-VITAMINS [Concomitant]
     Dosage: UNK
     Route: 048
  4. TYLENOL (CAPLET) [Concomitant]
     Dosage: 325 MG, PRN
  5. TOPAMAX [Concomitant]
     Indication: MIGRAINE
     Dosage: 1 BID
     Route: 048
  6. COUMADIN [Suspect]
     Dosage: UNK
  7. FIORICET [Concomitant]
     Indication: MIGRAINE
     Dosage: UNK
  8. IMITREX [Concomitant]
     Indication: MIGRAINE
     Dosage: UNK

REACTIONS (2)
  - HAEMORRHAGE [None]
  - ALCOHOL ABUSE [None]
